FAERS Safety Report 23165854 (Version 4)
Quarter: 2025Q3

REPORT INFORMATION
  Report Type: Report from Study
  Country: EU (occurrence: EU)
  Receive Date: 20231109
  Receipt Date: 20250923
  Transmission Date: 20251020
  Serious: Yes (Hospitalization, Other)
  Sender: TAKEDA
  Company Number: EU-TAKEDA-2023TUS108795

PATIENT
  Age: 43 Year
  Sex: Female

DRUGS (21)
  1. TEDUGLUTIDE [Suspect]
     Active Substance: TEDUGLUTIDE
     Indication: Short-bowel syndrome
     Dosage: 2.25 MILLIGRAM, QD
     Dates: start: 20150410, end: 20230509
  2. TEDUGLUTIDE [Suspect]
     Active Substance: TEDUGLUTIDE
     Dosage: 2.25 MILLIGRAM, 4/WEEK
     Dates: start: 20230510
  3. TEDUGLUTIDE [Suspect]
     Active Substance: TEDUGLUTIDE
  4. TEDUGLUTIDE [Suspect]
     Active Substance: TEDUGLUTIDE
  5. Kalinor [Concomitant]
     Indication: Hypokalaemia
     Dosage: UNK UNK, TID
     Dates: start: 20230616, end: 20230627
  6. IMODIUM [Concomitant]
     Active Substance: LOPERAMIDE HYDROCHLORIDE
     Indication: Prophylaxis
  7. PSYLLIUM HUSKS [Concomitant]
     Active Substance: PSYLLIUM HUSK
     Indication: Prophylaxis
     Dosage: UNK UNK, BID
     Dates: start: 20230203
  8. COTRIM [Concomitant]
     Active Substance: SULFAMETHOXAZOLE\TRIMETHOPRIM
     Indication: Urinary tract infection
  9. FERROUS GLUCONATE [Concomitant]
     Active Substance: FERROUS GLUCONATE
     Indication: Blood iron
     Dosage: 100 MILLIGRAM, BID
     Dates: start: 2021, end: 2022
  10. FENTANYL [Concomitant]
     Active Substance: FENTANYL
     Indication: Gastroenteritis radiation
     Dosage: 1 DOSAGE FORM, Q72H
     Route: 061
     Dates: start: 2021, end: 2022
  11. CYANOCOBALAMIN [Concomitant]
     Active Substance: CYANOCOBALAMIN
     Indication: Vitamin supplementation
     Dosage: 1000 MICROGRAM, QD
     Dates: start: 2021, end: 2022
  12. ALLOPURINOL [Concomitant]
     Active Substance: ALLOPURINOL
     Indication: Renal failure
     Dosage: 100 MILLIGRAM, QD
     Dates: start: 2023
  13. FLUOXETINE HYDROCHLORIDE [Concomitant]
     Active Substance: FLUOXETINE HYDROCHLORIDE
     Indication: Depression
     Dosage: 22.4 MILLIGRAM, QD
     Dates: start: 2022
  14. SODIUM BICARBONATE [Concomitant]
     Active Substance: SODIUM BICARBONATE
     Indication: Metabolic acidosis
     Dosage: 840 MILLIGRAM, BID
     Dates: start: 2022
  15. Dropizol [Concomitant]
     Indication: Gastroenteritis radiation
     Dosage: 10 GTT DROPS, BID
     Dates: start: 2022
  16. CHOLECALCIFEROL [Concomitant]
     Active Substance: CHOLECALCIFEROL
     Indication: Vitamin D deficiency
     Dosage: 500 MICROGRAM, 1/WEEK
     Dates: start: 20231005
  17. CEFOTAXIME [Concomitant]
     Active Substance: CEFOTAXIME SODIUM
     Indication: Bacteriuria
  18. OCTREOTIDE [Concomitant]
     Active Substance: OCTREOTIDE
     Indication: Short-bowel syndrome
     Dosage: 100 MICROGRAM, TID
     Dates: start: 202310
  19. ETILEFRINE HYDROCHLORIDE [Concomitant]
     Active Substance: ETILEFRINE HYDROCHLORIDE
     Indication: Hypotension
     Dosage: 10 GTT DROPS, BID
     Dates: start: 202310
  20. Calcet [Concomitant]
     Indication: Hypocalcaemia
     Dosage: 475 MILLIGRAM, TID
     Dates: start: 202310
  21. Posterisan [Concomitant]
     Indication: Haemorrhoids

REACTIONS (11)
  - Acute kidney injury [Recovered/Resolved]
  - Hyperkalaemia [Recovered/Resolved]
  - Chronic kidney disease [Not Recovered/Not Resolved]
  - Hypokalaemia [Recovered/Resolved]
  - Hyperchromic anaemia [Not Recovered/Not Resolved]
  - Bacteriuria [Not Recovered/Not Resolved]
  - Hypocalcaemia [Not Recovered/Not Resolved]
  - Hyponatraemia [Recovered/Resolved]
  - Hyperphosphataemia [Not Recovered/Not Resolved]
  - Hypotension [Not Recovered/Not Resolved]
  - Magnesium deficiency [Not Recovered/Not Resolved]

NARRATIVE: CASE EVENT DATE: 20230930
